FAERS Safety Report 20773259 (Version 1)
Quarter: 2022Q2

REPORT INFORMATION
  Report Type: Spontaneous
  Country: US (occurrence: None)
  Receive Date: 20220501
  Receipt Date: 20220501
  Transmission Date: 20220720
  Serious: Yes (Other)
  Sender: FDA-Public Use
  Company Number: None

PATIENT
  Age: 75 Year
  Sex: Male
  Weight: 93.8 kg

DRUGS (1)
  1. PAXLOVID [Suspect]
     Active Substance: NIRMATRELVIR\RITONAVIR

REACTIONS (5)
  - Abdominal pain [None]
  - Abdominal distension [None]
  - Lipase increased [None]
  - Pancreatitis haemorrhagic [None]
  - Ileus [None]

NARRATIVE: CASE EVENT DATE: 20220501
